FAERS Safety Report 9252508 (Version 2)
Quarter: 2013Q2

REPORT INFORMATION
  Report Type: Spontaneous
  Country: US (occurrence: US)
  Receive Date: 20130424
  Receipt Date: 20130424
  Transmission Date: 20140414
  Serious: No
  Sender: FDA-Public Use
  Company Number: US-MYLANLABS-2013S1002623

PATIENT
  Sex: Female

DRUGS (3)
  1. NISOLDIPINE EXTENDED-RELEASE TABLETS [Suspect]
     Indication: BLOOD PRESSURE
     Route: 048
     Dates: start: 201210, end: 201301
  2. FLECAINIDE [Concomitant]
     Indication: ARRHYTHMIA
     Dosage: ADDED AFTER EVENT UNRELATED TO NISOLDIPINE
     Dates: start: 201211
  3. HYDROCHLOROTHIAZIDE [Concomitant]
     Indication: BLOOD PRESSURE
     Dosage: 1/2 TABLET DAILY
     Route: 048
     Dates: start: 2013

REACTIONS (2)
  - Drug ineffective [Recovering/Resolving]
  - Blood pressure increased [Not Recovered/Not Resolved]
